FAERS Safety Report 20564738 (Version 1)
Quarter: 2022Q1

REPORT INFORMATION
  Report Type: Spontaneous
  Country: US (occurrence: US)
  Receive Date: 20220308
  Receipt Date: 20220308
  Transmission Date: 20220423
  Serious: No
  Sender: FDA-Public Use
  Company Number: US-SA-SAC20220304000143

PATIENT
  Age: 50 Year
  Sex: Female

DRUGS (11)
  1. DUPIXENT [Suspect]
     Active Substance: DUPILUMAB
     Indication: Asthma
     Dosage: 300 MG, QOW
     Route: 058
     Dates: start: 20200125
  2. ADVAIR HFA [Concomitant]
     Active Substance: FLUTICASONE PROPIONATE\SALMETEROL XINAFOATE
     Dosage: 200 MG
  3. CELEBREX [Concomitant]
     Active Substance: CELECOXIB
     Dosage: UNK
  4. EPINEPHRINE [Concomitant]
     Active Substance: EPINEPHRINE
     Dosage: UNK
  5. EUCRISA [Concomitant]
     Active Substance: CRISABOROLE
     Dosage: UNK
  6. FLUTICASONE [Concomitant]
     Active Substance: FLUTICASONE
     Dosage: UNK
  7. LEXAPRO [Concomitant]
     Active Substance: ESCITALOPRAM OXALATE
     Dosage: UNK
     Route: 048
  8. MONTELUKAST SODIUM [Concomitant]
     Active Substance: MONTELUKAST SODIUM
     Dosage: UNK
  9. NORVASC [Concomitant]
     Active Substance: AMLODIPINE BESYLATE
     Dosage: UNK
     Route: 048
  10. PROVENTIL HFA [SALBUTAMOL] [Concomitant]
     Dosage: UNK
  11. DESLORATADINE [Concomitant]
     Active Substance: DESLORATADINE
     Dosage: UNK
     Route: 048

REACTIONS (2)
  - Product dose omission in error [Unknown]
  - Product use issue [Unknown]

NARRATIVE: CASE EVENT DATE: 20200125
